FAERS Safety Report 10038149 (Version 1)
Quarter: 2014Q1

REPORT INFORMATION
  Report Type: Spontaneous
  Country: US (occurrence: None)
  Receive Date: 20140306
  Receipt Date: 20140306
  Transmission Date: 20141002
  Serious: Yes (Other)
  Sender: FDA-Public Use
  Company Number: 163-21880-13043797

PATIENT
  Age: 69 Year
  Sex: Female
  Weight: 71 kg

DRUGS (6)
  1. REVLIMID [Suspect]
     Indication: PLASMA CELL MYELOMA
     Dosage: 15 MG, 1 IN 1 D, PO  07/ / 2010 - UNKNOWN
     Route: 048
     Dates: start: 201007
  2. TOPROL (METOPROLOL SUCCINATE) [Concomitant]
  3. FOLIC ACID (FOLIC ACID) [Concomitant]
  4. PRILOSEC (OMEPRAZOLE) [Concomitant]
  5. LISINOPRIL (LISINOPRIL) [Concomitant]
  6. VITAMIN B12 (CYANOCOBALAMIN) [Concomitant]

REACTIONS (1)
  - Pancytopenia [None]
